FAERS Safety Report 6836986-5 (Version None)
Quarter: 2010Q3

REPORT INFORMATION
  Report Type: 
  Country: None (occurrence: None)
  Receive Date: 20100713
  Receipt Date: 20100701
  Transmission Date: 20110219
  Serious: Yes (Other)
  Sender: FDA-Public Use
  Company Number: PHHY2010AU43572

PATIENT
  Age: 17 Year
  Sex: Male

DRUGS (1)
  1. CICLOSPORIN [Suspect]
     Indication: LIVER TRANSPLANT

REACTIONS (3)
  - CHOLANGITIS [None]
  - HAEMOLYTIC ANAEMIA [None]
  - SOFT TISSUE INFECTION [None]
